FAERS Safety Report 5048795-0 (Version None)
Quarter: 2006Q3

REPORT INFORMATION
  Report Type: 
  Country: None (occurrence: None)
  Receive Date: 20060705
  Receipt Date: 20060626
  Transmission Date: 20061208
  Serious: Yes (Other)
  Sender: FDA-Public Use
  Company Number: 2006070603

PATIENT
  Age: 57 Year
  Sex: Female
  Weight: 75 kg

DRUGS (3)
  1. AROMASIN [Suspect]
     Indication: BREAST CANCER
     Dosage: 25 MG (25 MG), ORAL
     Route: 048
     Dates: start: 20051106
  2. LAMICTAL [Concomitant]
  3. KEPPRA [Concomitant]

REACTIONS (1)
  - GRAND MAL CONVULSION [None]
